FAERS Safety Report 4455614-X (Version None)
Quarter: 2004Q3

REPORT INFORMATION
  Report Type: 
  Country: None (occurrence: None)
  Receive Date: 20040917
  Receipt Date: 20040830
  Transmission Date: 20050211
  Serious: Yes (Death, Other)
  Sender: FDA-Public Use
  Company Number: US_0408104995

PATIENT
  Age: 22 Year
  Sex: Male
  Weight: 66 kg

DRUGS (9)
  1. XIGRIS [Suspect]
     Indication: SEPSIS
     Dosage: 24 UG/KG/HR
     Dates: start: 20040603, end: 20040604
  2. HEPARIN [Concomitant]
  3. VANCOMYCIN [Concomitant]
  4. AMIODARONE [Concomitant]
  5. CIPROFLOXACIN [Concomitant]
  6. LEVOFLOXACIN [Concomitant]
  7. SULFAMETHOXAZOLE + TRIMETHOPRIM [Concomitant]
  8. CASPOFUNGIN [Concomitant]
  9. ACYCLOVIR (ACICLOVIR EG) [Concomitant]

REACTIONS (6)
  - ACTIVATED PARTIAL THROMBOPLASTIN TIME PROLONGED [None]
  - EPISTAXIS [None]
  - HAEMORRHAGE [None]
  - INTERNATIONAL NORMALISED RATIO INCREASED [None]
  - MOUTH HAEMORRHAGE [None]
  - PROTHROMBIN TIME PROLONGED [None]
